FAERS Safety Report 7690626-4 (Version None)
Quarter: 2011Q3

REPORT INFORMATION
  Report Type: 
  Country: None (occurrence: None)
  Receive Date: 20110818
  Receipt Date: 20110808
  Transmission Date: 20111222
  Serious: Yes (Hospitalization)
  Sender: FDA-Public Use
  Company Number: DE-SANOFI-AVENTIS-2011SA050563

PATIENT
  Age: 57 Year
  Sex: Male
  Weight: 78 kg

DRUGS (6)
  1. MARCUMAR [Concomitant]
     Indication: ATRIAL FIBRILLATION
     Dosage: DEPENDS ON INR
     Route: 048
  2. XELODA [Suspect]
     Indication: RECTAL CANCER
     Route: 048
     Dates: start: 20101201
  3. XELODA [Suspect]
     Route: 048
     Dates: end: 20110807
  4. THERAPEUTIC RADIOPHARMACEUTICALS [Suspect]
     Indication: RECTAL CANCER
     Dosage: 50.4 GY TOTAL
     Dates: start: 20101202, end: 20110113
  5. OXALIPLATIN [Suspect]
     Route: 042
     Dates: start: 20110801, end: 20110801
  6. OXALIPLATIN [Suspect]
     Indication: RECTAL CANCER
     Route: 042
     Dates: start: 20101202, end: 20101202

REACTIONS (3)
  - ABDOMINAL PAIN [None]
  - SUBILEUS [None]
  - HYPOTONIA [None]
